FAERS Safety Report 5387278-5 (Version None)
Quarter: 2007Q3

REPORT INFORMATION
  Report Type: 
  Country: None (occurrence: None)
  Receive Date: 20070716
  Receipt Date: 20070705
  Transmission Date: 20080115
  Serious: Yes (Hospitalization)
  Sender: FDA-Public Use
  Company Number: PHHO2007JP11344

PATIENT
  Sex: Female
  Weight: 53 kg

DRUGS (2)
  1. DIOVAN [Suspect]
     Indication: HYPERTENSION
     Dosage: 80 MG, QD
     Route: 048
     Dates: start: 20060613, end: 20060725
  2. DIOVAN [Suspect]
     Dosage: 80 MG, QD
     Route: 048

REACTIONS (1)
  - NEOPLASM MALIGNANT [None]
